FAERS Safety Report 6928338-4 (Version None)
Quarter: 2010Q3

REPORT INFORMATION
  Report Type: 
  Country: None (occurrence: None)
  Receive Date: 20100812
  Receipt Date: 20100806
  Transmission Date: 20110219
  Serious: Yes (Hospitalization)
  Sender: FDA-Public Use
  Company Number: 2010SP042828

PATIENT
  Age: 62 Year
  Sex: Female
  Weight: 76.4 kg

DRUGS (2)
  1. TEMOZOLOMIDE [Suspect]
     Indication: GLIOBLASTOMA
     Dosage: 140 MG;QD;PO
     Route: 048
     Dates: start: 20081211, end: 20090512
  2. DEXAMETHASONE [Concomitant]

REACTIONS (14)
  - ALANINE AMINOTRANSFERASE INCREASED [None]
  - ASPARTATE AMINOTRANSFERASE INCREASED [None]
  - ATRIAL TACHYCARDIA [None]
  - BRAIN OEDEMA [None]
  - BRAIN SCAN ABNORMAL [None]
  - CONFUSIONAL STATE [None]
  - HEADACHE [None]
  - HYPERGLYCAEMIA [None]
  - MYOCARDIAL ISCHAEMIA [None]
  - POSTICTAL STATE [None]
  - SOMNOLENCE [None]
  - STUPOR [None]
  - SUPRAVENTRICULAR EXTRASYSTOLES [None]
  - VENTRICULAR EXTRASYSTOLES [None]
